FAERS Safety Report 22284802 (Version 3)
Quarter: 2023Q4

REPORT INFORMATION
  Report Type: Spontaneous
  Country: US (occurrence: US)
  Receive Date: 20230504
  Receipt Date: 20231215
  Transmission Date: 20240109
  Serious: Yes (Other)
  Sender: FDA-Public Use
  Company Number: US-PFIZER INC-PV202300077379

PATIENT
  Age: 76 Year
  Sex: Female
  Weight: 92.608 kg

DRUGS (3)
  1. IBRANCE [Suspect]
     Active Substance: PALBOCICLIB
     Indication: Breast cancer female
     Dosage: 100 MG, DAILY DAYS 1-21, EVERY 28 DAYS
  2. IBRANCE [Suspect]
     Active Substance: PALBOCICLIB
     Dosage: 75 MG
  3. IBRANCE [Suspect]
     Active Substance: PALBOCICLIB
     Dosage: TAKE 1 TABLET BY MOUTH DAILY FOR 3 WEEKS, HOLD 1 WEEK, REPEAT
     Route: 048

REACTIONS (4)
  - Cataract [Unknown]
  - Cytopenia [Unknown]
  - Hypoacusis [Unknown]
  - Fatigue [Not Recovered/Not Resolved]
